FAERS Safety Report 7191490-2 (Version None)
Quarter: 2010Q4

REPORT INFORMATION
  Report Type: 
  Country: None (occurrence: None)
  Receive Date: 20101221
  Receipt Date: 20101221
  Transmission Date: 20110411
  Serious: Yes (Other)
  Sender: FDA-Public Use
  Company Number: None

PATIENT
  Age: 75 Year
  Sex: Male

DRUGS (2)
  1. PROPOXYPHENE HCL AND ACETAMINOPHEN [Suspect]
     Indication: PAIN
     Dosage: 100-650 1 TABLET EVERY 6-8 HRS ORAL
     Route: 048
     Dates: start: 20100901
  2. PROPOXYPHENE HCL AND ACETAMINOPHEN [Suspect]
     Indication: PAIN
     Dosage: 100-650 1 TABLET EVERY 6-8 HRS ORAL
     Route: 048
     Dates: start: 20101001

REACTIONS (2)
  - DYSPNOEA [None]
  - PALPITATIONS [None]
